FAERS Safety Report 23314680 (Version 2)
Quarter: 2023Q4

REPORT INFORMATION
  Report Type: Spontaneous
  Country: US (occurrence: US)
  Receive Date: 20231219
  Receipt Date: 20231228
  Transmission Date: 20240110
  Serious: No
  Sender: FDA-Public Use
  Company Number: US-PFIZER INC-PV202300196726

PATIENT
  Age: 13 Year
  Sex: Male

DRUGS (2)
  1. GENOTROPIN [Suspect]
     Active Substance: SOMATROPIN
     Dosage: 2.2 MG, ALTERNATE DAY (2.4MG EVERY OTHER DAY)EQUIVALENT TO 2.3MG DAILY
     Dates: start: 202311
  2. GENOTROPIN [Suspect]
     Active Substance: SOMATROPIN
     Dosage: 2.4 MG, ALTERNATE DAY (2.2 MG EVERY OTHER DAY)EQUIVALENT TO 2.3MG DAILY
     Dates: start: 202311

REACTIONS (4)
  - Injection site discharge [Unknown]
  - Device use error [Unknown]
  - Liquid product physical issue [Unknown]
  - Device mechanical issue [Unknown]
